FAERS Safety Report 18910754 (Version 2)
Quarter: 2021Q1

REPORT INFORMATION
  Report Type: Spontaneous
  Country: US (occurrence: US)
  Receive Date: 20210218
  Receipt Date: 20210324
  Transmission Date: 20210420
  Serious: No
  Sender: FDA-Public Use
  Company Number: US-SA-2021SA056070

PATIENT
  Sex: Male

DRUGS (5)
  1. DOXEPIN HCL [Concomitant]
     Active Substance: DOXEPIN HYDROCHLORIDE
  2. TRIAMCINOLONE [Concomitant]
     Active Substance: TRIAMCINOLONE
  3. DUPIXENT [Suspect]
     Active Substance: DUPILUMAB
     Indication: DERMATITIS ATOPIC
     Dosage: 300 MG, QOW
     Route: 058
     Dates: start: 20200306
  4. PREDNISONE. [Concomitant]
     Active Substance: PREDNISONE
  5. LEVOCETRIZINE HYDROCHLORIDE [Concomitant]

REACTIONS (2)
  - Dermatitis atopic [Unknown]
  - Eye disorder [Not Recovered/Not Resolved]
